FAERS Safety Report 7674829-0 (Version None)
Quarter: 2011Q3

REPORT INFORMATION
  Report Type: 
  Country: None (occurrence: None)
  Receive Date: 20110810
  Receipt Date: 20110801
  Transmission Date: 20111222
  Serious: Yes (Hospitalization)
  Sender: FDA-Public Use
  Company Number: DE-ROCHE-795499

PATIENT
  Sex: Female

DRUGS (4)
  1. METOPROLOL SUCCINATE [Concomitant]
  2. RAMIPRIL [Concomitant]
  3. XELODA [Suspect]
     Dosage: END OF 3RD CYCLE ON 2 AUG 2011
     Route: 048
  4. ASPIRIN [Interacting]
     Indication: THROMBOSIS PROPHYLAXIS
     Route: 065
     Dates: start: 20110101

REACTIONS (2)
  - EPISTAXIS [None]
  - DRUG INTERACTION [None]
